FAERS Safety Report 7994283-9 (Version None)
Quarter: 2011Q4

REPORT INFORMATION
  Report Type: 
  Country: None (occurrence: None)
  Receive Date: 20111220
  Receipt Date: 20111209
  Transmission Date: 20120403
  Serious: Yes (Hospitalization)
  Sender: FDA-Public Use
  Company Number: US-ASTRAZENECA-2011SE59948

PATIENT
  Age: 28149 Day
  Sex: Female

DRUGS (17)
  1. PLAVIX [Suspect]
     Route: 048
     Dates: start: 20111004, end: 20111010
  2. LISINOPRIL [Concomitant]
     Indication: HYPERTENSION
     Route: 048
     Dates: start: 20110806, end: 20110808
  3. NITROGLYCERIN [Concomitant]
     Indication: ANGINA PECTORIS
     Route: 060
     Dates: start: 20110706
  4. MULTI-VITAMIN [Concomitant]
     Indication: ROUTINE HEALTH MAINTENANCE
     Route: 048
  5. FAMOTIDINE [Concomitant]
     Indication: GASTROOESOPHAGEAL REFLUX DISEASE
     Route: 048
  6. LISINOPRIL [Concomitant]
     Indication: ACCELERATED HYPERTENSION
     Route: 048
     Dates: start: 20110806, end: 20110808
  7. LISINOPRIL [Concomitant]
     Route: 048
     Dates: start: 20110808
  8. METFORMIN HCL [Concomitant]
     Indication: TYPE 2 DIABETES MELLITUS
     Route: 048
  9. SERTRALINE HYDROCHLORIDE [Concomitant]
     Indication: DEPRESSION
     Route: 048
  10. PLAVIX [Suspect]
     Indication: CORONARY ARTERY DISEASE
     Route: 048
     Dates: start: 20110718, end: 20110806
  11. METOPROLOL TARTRATE [Concomitant]
     Indication: HYPERTENSION
     Route: 048
  12. KETOROLAC TROMETHAMINE [Concomitant]
     Indication: CATARACT OPERATION
     Route: 047
  13. PLAVIX [Suspect]
     Route: 048
     Dates: start: 20110808, end: 20110930
  14. SIMVASTATIN [Concomitant]
     Indication: HYPERLIPIDAEMIA
     Route: 048
  15. LISINOPRIL [Concomitant]
     Route: 048
     Dates: start: 20110808
  16. SERTRALINE HYDROCHLORIDE [Concomitant]
     Indication: ANXIETY
     Route: 048
  17. ASPIRIN [Concomitant]
     Route: 048

REACTIONS (1)
  - NON-CARDIAC CHEST PAIN [None]
